FAERS Safety Report 9476445 (Version 1)
Quarter: 2013Q3

REPORT INFORMATION
  Report Type: Spontaneous
  Country: CA (occurrence: CA)
  Receive Date: 20130826
  Receipt Date: 20130826
  Transmission Date: 20140515
  Serious: Yes (Other)
  Sender: FDA-Public Use
  Company Number: CA-PFIZER INC-2013244213

PATIENT
  Age: 68 Year
  Sex: Male
  Weight: 73.3 kg

DRUGS (20)
  1. PHENYTOIN [Suspect]
     Indication: GRAND MAL CONVULSION
     Dosage: 500 MG,  LOADING DOSE
     Route: 042
  2. PHENYTOIN [Interacting]
     Dosage: 100 MG,  Q8H
     Route: 042
  3. PHENYTOIN [Interacting]
     Dosage: 350 MG, DAILY
  4. SIROLIMUS [Interacting]
     Indication: IMMUNOSUPPRESSANT DRUG THERAPY
     Dosage: 2MG, DAILY
  5. SIROLIMUS [Interacting]
     Dosage: 3MG, DAILY
  6. SIROLIMUS [Interacting]
     Dosage: 8MG, DAILY
  7. CARBAMAZEPINE [Interacting]
     Indication: GRAND MAL CONVULSION
     Dosage: 200 MG, 2X/DAY
  8. CARBAMAZEPINE [Interacting]
     Dosage: 400 MG, 2X/DAY
  9. CARBAMAZEPINE [Interacting]
     Dosage: TAPERED BY 50 % EVERY 4 DAYS
  10. ACETYLSALICYLIC ACID [Concomitant]
     Dosage: 81MG, DAILY
  11. CLOPIDOGREL [Concomitant]
     Indication: MYOCARDIAL INFARCTION
     Dosage: 75 MG, DAILY
  12. REPAGLINIDE [Concomitant]
     Dosage: 2 MG, 3X/DAY
  13. INSULIN [Concomitant]
     Dosage: 4-8 UNITS AT BEDTIME
  14. PANTOPRAZOLE [Concomitant]
     Dosage: 40MG, DAILY
  15. METOPROLOL [Concomitant]
     Indication: MYOCARDIAL INFARCTION
     Dosage: 25 MG, 2X/DAY
  16. EZETIMIBE [Concomitant]
     Indication: MYOCARDIAL INFARCTION
     Dosage: 10MG, DAILY
  17. LEVOTHYROXINE [Concomitant]
     Dosage: 50 ?G, DAILY
  18. CALCIUM CARBONATE [Concomitant]
     Dosage: 1250 MG, DAILY
  19. VITAMIN D [Concomitant]
     Dosage: 400 UNITS, DAILY
  20. DORZOLAMIDE HYDROCHLORIDE/TIMOLOL MALEATE [Concomitant]
     Dosage: (20 AND 5 MG/ML) 1 DROP IN EACH EYE DAILY

REACTIONS (5)
  - Off label use [Unknown]
  - Drug interaction [Recovered/Resolved]
  - Drug level decreased [Recovered/Resolved]
  - Gamma-glutamyltransferase increased [Recovered/Resolved]
  - Drug ineffective [Unknown]
